FAERS Safety Report 16745022 (Version 1)
Quarter: 2019Q3

REPORT INFORMATION
  Report Type: Spontaneous
  Country: CA (occurrence: CA)
  Receive Date: 20190827
  Receipt Date: 20190827
  Transmission Date: 20191005
  Serious: Yes (Other)
  Sender: FDA-Public Use
  Company Number: CA-CELGENEUS-CAN-20190807007

PATIENT
  Sex: Female

DRUGS (1)
  1. REVLIMID [Suspect]
     Active Substance: LENALIDOMIDE
     Indication: PLASMA CELL MYELOMA
     Dosage: 25 MILLIGRAM
     Route: 048
     Dates: start: 20180910, end: 20190807

REACTIONS (7)
  - Hypoacusis [Unknown]
  - Pain in extremity [Unknown]
  - Ageusia [Unknown]
  - Anosmia [Unknown]
  - Oedema peripheral [Unknown]
  - Anal incontinence [Unknown]
  - Back pain [Unknown]
